FAERS Safety Report 5048079-0 (Version None)
Quarter: 2006Q2

REPORT INFORMATION
  Report Type: 
  Country: None (occurrence: None)
  Receive Date: 20060601
  Receipt Date: 20060307
  Transmission Date: 20061013
  Serious: No
  Sender: FDA-Public Use
  Company Number: 2006PV009851

PATIENT
  Age: 53 Year
  Sex: Female
  Weight: 81.6475 kg

DRUGS (4)
  1. BYETTA [Suspect]
     Indication: DIABETES MELLITUS NON-INSULIN-DEPENDENT
     Dosage: 5 MCG; BID; SC
     Route: 058
     Dates: start: 20060201
  2. HUMULIN [Concomitant]
  3. METFORMIN [Concomitant]
  4. GLIMEPIRIDE [Concomitant]

REACTIONS (1)
  - URTICARIA [None]
